FAERS Safety Report 24527232 (Version 1)
Quarter: 2024Q4

REPORT INFORMATION
  Report Type: Report from Study
  Country: US (occurrence: US)
  Receive Date: 20241021
  Receipt Date: 20241021
  Transmission Date: 20250114
  Serious: No
  Sender: ROCHE
  Company Number: US-ROCHE-3506078

PATIENT
  Age: 68 Year
  Sex: Female

DRUGS (3)
  1. COTELLIC [Suspect]
     Active Substance: COBIMETINIB
     Indication: Malignant neoplasm of ampulla of Vater
     Dosage: TAKE 1 TABLET BY MOUTH TWICE A DAY FOR DAYS 1-21 EVERY 28 DAY(S)
     Route: 048
  2. COTELLIC [Suspect]
     Active Substance: COBIMETINIB
     Indication: Pancreatic carcinoma
  3. COTELLIC [Suspect]
     Active Substance: COBIMETINIB
     Indication: Hepatobiliary cancer

REACTIONS (2)
  - Off label use [Unknown]
  - No adverse event [Unknown]
